FAERS Safety Report 26144612 (Version 1)
Quarter: 2025Q4

REPORT INFORMATION
  Report Type: Spontaneous
  Country: EU (occurrence: EU)
  Receive Date: 20251211
  Receipt Date: 20251211
  Transmission Date: 20260118
  Serious: Yes (Hospitalization)
  Sender: RANBAXY
  Company Number: EU-AFSSAPS-RS2025000844

PATIENT
  Age: 78 Year
  Sex: Female
  Weight: 53.3 kg

DRUGS (2)
  1. CIPROFLOXACIN [Suspect]
     Active Substance: CIPROFLOXACIN
     Indication: Urinary tract infection
     Dosage: UNK
     Route: 048
     Dates: start: 202505, end: 202506
  2. LIBTAYO [Suspect]
     Active Substance: CEMIPLIMAB-RWLC
     Indication: Squamous cell carcinoma
     Dosage: 350 MILLIGRAM, 1 DOSE/3 WEEKS
     Route: 040
     Dates: start: 20250515, end: 20250807

REACTIONS (2)
  - Pancytopenia [Recovering/Resolving]
  - Eosinophilia [Recovered/Resolved]

NARRATIVE: CASE EVENT DATE: 20250717
